FAERS Safety Report 9934233 (Version 1)
Quarter: 2014Q1

REPORT INFORMATION
  Report Type: Spontaneous
  Country: JP (occurrence: JP)
  Receive Date: 20140228
  Receipt Date: 20140228
  Transmission Date: 20141002
  Serious: Yes (Hospitalization)
  Sender: FDA-Public Use
  Company Number: PHHY2014JP023968

PATIENT
  Age: 83 Year
  Sex: Male

DRUGS (3)
  1. RIVASTIGMIN [Suspect]
     Indication: DEMENTIA ALZHEIMER^S TYPE
     Dosage: 4.5 MG, DAILY
     Route: 062
     Dates: start: 20120921, end: 20121018
  2. RIVASTIGMIN [Suspect]
     Dosage: 9 MG, DAILY
     Route: 062
     Dates: start: 20121019, end: 20121115
  3. RIVASTIGMIN [Suspect]
     Dosage: 13.5 MG, DAILY
     Route: 062
     Dates: start: 20121116, end: 20121213

REACTIONS (1)
  - Gastric cancer [Recovered/Resolved]
